FAERS Safety Report 19251526 (Version 1)
Quarter: 2021Q2

REPORT INFORMATION
  Report Type: Spontaneous
  Country: US (occurrence: US)
  Receive Date: 20210513
  Receipt Date: 20210513
  Transmission Date: 20210717
  Serious: No
  Sender: FDA-Public Use
  Company Number: US-SUN PHARMACEUTICAL INDUSTRIES LTD-2021R1-285291

PATIENT
  Age: 59 Year
  Sex: Female

DRUGS (1)
  1. ILUMYA [Suspect]
     Active Substance: TILDRAKIZUMAB-ASMN
     Indication: PRODUCT USED FOR UNKNOWN INDICATION
     Dosage: LEAST ONE SHOT OF ILUMYA
     Route: 065
     Dates: start: 2019

REACTIONS (2)
  - Product dose omission issue [Unknown]
  - Alopecia [Not Recovered/Not Resolved]

NARRATIVE: CASE EVENT DATE: 202002
